FAERS Safety Report 4822012-6 (Version None)
Quarter: 2005Q4

REPORT INFORMATION
  Report Type: 
  Country: None (occurrence: None)
  Receive Date: 20051107
  Receipt Date: 20051102
  Transmission Date: 20060501
  Serious: Yes (Other)
  Sender: FDA-Public Use
  Company Number: US-JNJFOC-20051101082

PATIENT
  Age: 50 Year
  Sex: Male

DRUGS (2)
  1. NATRECOR [Suspect]
     Dosage: 0.01 MCG/KG/MIN
     Route: 042
  2. NATRECOR [Suspect]
     Dosage: 0.01 MCG/KG/MIN
     Route: 042

REACTIONS (2)
  - BLOOD BILIRUBIN INCREASED [None]
  - HEPATIC CONGESTION [None]
